FAERS Safety Report 5165817-7 (Version None)
Quarter: 2006Q4

REPORT INFORMATION
  Report Type: 
  Country: None (occurrence: None)
  Receive Date: 20061128
  Receipt Date: 20061117
  Transmission Date: 20070319
  Serious: Yes (Death, Life-Threatening, Other)
  Sender: FDA-Public Use
  Company Number: 430003N06JPN

PATIENT
  Age: 37 Year
  Sex: Male

DRUGS (16)
  1. NOVANTRONE [Suspect]
     Dosage: 10 MG/M2, 1 IN 1 DAYS, INTRAVENOUS
     Route: 042
     Dates: start: 20060101, end: 20060101
  2. NOVANTRONE [Suspect]
     Dosage: 10 MG/M2, 1 IN 1 DAYS, INTRAVENOUS
     Route: 042
     Dates: start: 20060108, end: 20060108
  3. GEMTUZUMAB OZOGAMICIN [Suspect]
     Dosage: 9 MG/M2, ONCE, INTRAVENOUS (NOT OTHERWISE SPECIFIED)
     Route: 042
     Dates: start: 20051114, end: 20051114
  4. GEMTUZUMAB OZOGAMICIN [Suspect]
     Dosage: 9 MG/M2, ONCE, INTRAVENOUS (NOT OTHERWISE SPECIFIED)
     Route: 042
     Dates: start: 20051208, end: 20051208
  5. ACLARUBICIN HYDROCHLORIDE [Suspect]
     Dates: start: 20060204, end: 20060224
  6. ACLARUBICIN HYDROCHLORIDE [Suspect]
     Dates: start: 20060404, end: 20060425
  7. CYTARABINE [Suspect]
     Dates: start: 20051229, end: 20060106
  8. CYTARABINE [Suspect]
     Dates: start: 20060204, end: 20060224
  9. CYTARABINE [Suspect]
     Dates: start: 20060404, end: 20060425
  10. HYDROXYCARBAMIDE [Suspect]
     Dosage: ORAL
     Route: 048
     Dates: start: 20060426, end: 20060605
  11. LANSOPRAZOLE [Concomitant]
  12. LACTOBACILLUS BIFIDUS, LYOPHILIZED [Concomitant]
  13. LEVOFLOXACIN [Concomitant]
  14. FLUCONAZOLE [Concomitant]
  15. CEFEPIME HYDROCHLORIDE [Concomitant]
  16. CEFCAPENE PIVOXIL HYDROCHLORIDE [Concomitant]

REACTIONS (12)
  - ABDOMINAL PAIN UPPER [None]
  - ACUTE MYELOID LEUKAEMIA [None]
  - ANAEMIA [None]
  - INFECTION [None]
  - MALIGNANT NEOPLASM PROGRESSION [None]
  - NEUTROPENIA [None]
  - NEUTROPHIL COUNT DECREASED [None]
  - PERIANAL ABSCESS [None]
  - PLATELET COUNT DECREASED [None]
  - PNEUMONIA [None]
  - PYREXIA [None]
  - WHITE BLOOD CELL COUNT DECREASED [None]
